FAERS Safety Report 4319690-7 (Version None)
Quarter: 2004Q1

REPORT INFORMATION
  Report Type: 
  Country: None (occurrence: None)
  Receive Date: 20040316
  Receipt Date: 20040210
  Transmission Date: 20041129
  Serious: Yes (Death)
  Sender: FDA-Public Use
  Company Number: 04H-163-0252820-00

PATIENT

DRUGS (1)
  1. PRECEDEX [Suspect]

REACTIONS (1)
  - MULTI-ORGAN FAILURE [None]
